FAERS Safety Report 4995213-4 (Version None)
Quarter: 2006Q2

REPORT INFORMATION
  Report Type: 
  Country: None (occurrence: None)
  Receive Date: 20060508
  Receipt Date: 20051107
  Transmission Date: 20061013
  Serious: Yes (Death, Hospitalization)
  Sender: FDA-Public Use
  Company Number: US-MERCK-0511USA01154

PATIENT
  Age: 47 Year
  Sex: Male
  Weight: 55 kg

DRUGS (10)
  1. VIOXX [Suspect]
     Indication: OSTEOARTHRITIS
     Route: 048
     Dates: start: 20030101, end: 20030901
  2. LIPITOR [Concomitant]
     Route: 065
  3. [THERAPY UNSPECIFIED] [Concomitant]
     Route: 065
  4. NITRO-DUR [Concomitant]
     Route: 065
  5. PLAVIX [Concomitant]
     Route: 065
  6. CELEBREX [Concomitant]
     Route: 065
  7. BEXTRA [Concomitant]
     Route: 065
  8. PRINIVIL [Concomitant]
     Route: 065
  9. WELLBUTRIN [Concomitant]
     Route: 065
  10. ATENOLOL [Concomitant]
     Route: 065

REACTIONS (2)
  - CEREBROVASCULAR ACCIDENT [None]
  - DEATH [None]
